FAERS Safety Report 12005789 (Version 1)
Quarter: 2016Q1

REPORT INFORMATION
  Report Type: Spontaneous
  Country: US (occurrence: US)
  Receive Date: 20160205
  Receipt Date: 20160205
  Transmission Date: 20160526
  Serious: No
  Sender: FDA-Public Use
  Company Number: US-EMD SERONO-8065432

PATIENT
  Sex: Male

DRUGS (3)
  1. SEROSTIM [Suspect]
     Active Substance: SOMATROPIN
     Route: 058
     Dates: start: 20160118
  2. SEROSTIM [Suspect]
     Active Substance: SOMATROPIN
     Indication: PRODUCT USED FOR UNKNOWN INDICATION
     Route: 058
  3. SEROSTIM [Suspect]
     Active Substance: SOMATROPIN
     Route: 058

REACTIONS (1)
  - Heart rate increased [Recovered/Resolved]
